FAERS Safety Report 6706411-3 (Version None)
Quarter: 2010Q2

REPORT INFORMATION
  Report Type: 
  Country: None (occurrence: None)
  Receive Date: 20100503
  Receipt Date: 20100422
  Transmission Date: 20101027
  Serious: Yes (Disabling, Other)
  Sender: FDA-Public Use
  Company Number: PHHY2010TW25224

PATIENT
  Age: 84 Year
  Sex: Female

DRUGS (2)
  1. ACLASTA [Suspect]
     Dosage: 5 MG
     Route: 042
  2. NSAID'S [Concomitant]

REACTIONS (4)
  - GENERALISED ERYTHEMA [None]
  - OEDEMA PERIPHERAL [None]
  - SWELLING FACE [None]
  - URINARY INCONTINENCE [None]
